FAERS Safety Report 10228074 (Version 1)
Quarter: 2014Q2

REPORT INFORMATION
  Report Type: Spontaneous
  Country: TH (occurrence: TH)
  Receive Date: 20140610
  Receipt Date: 20140610
  Transmission Date: 20141212
  Serious: Yes (Other)
  Sender: FDA-Public Use
  Company Number: TH-WATSON-2014-12459

PATIENT
  Sex: Female

DRUGS (1)
  1. INDOMETACIN (UNKNOWN) [Suspect]
     Indication: TOCOLYSIS
     Dosage: UNKNOWN
     Route: 064

REACTIONS (6)
  - Cardiac failure high output [Recovering/Resolving]
  - Hydrops foetalis [Recovering/Resolving]
  - Premature baby [Recovering/Resolving]
  - Foetal exposure during pregnancy [Recovering/Resolving]
  - Maternal drugs affecting foetus [None]
  - Caesarean section [None]
